FAERS Safety Report 25385649 (Version 1)
Quarter: 2025Q2

REPORT INFORMATION
  Report Type: Report from Study
  Country: US (occurrence: US)
  Receive Date: 20250602
  Receipt Date: 20250602
  Transmission Date: 20250717
  Serious: Yes (Other)
  Sender: MALLINCKRODT
  Company Number: US-MALLINCKRODT-MNK202503249

PATIENT
  Age: 18 Year
  Sex: Male

DRUGS (7)
  1. UVADEX [Suspect]
     Active Substance: METHOXSALEN
     Indication: Transplant rejection
  2. UVADEX [Suspect]
     Active Substance: METHOXSALEN
     Indication: Transplant rejection
  3. UVADEX [Suspect]
     Active Substance: METHOXSALEN
     Indication: Transplant rejection
  4. LAPINE T-LYMPHOCYTE IMMUNE GLOBULIN [Concomitant]
     Active Substance: LAPINE T-LYMPHOCYTE IMMUNE GLOBULIN
  5. TACROLIMUS [Concomitant]
     Active Substance: TACROLIMUS
  6. MYCOPHENOLATE MOFETIL [Concomitant]
     Active Substance: MYCOPHENOLATE MOFETIL
  7. IMMUNE GLOBULIN NOS [Concomitant]
     Active Substance: IMMUNE GLOBULIN NOS
     Route: 042

REACTIONS (2)
  - Transplant rejection [Unknown]
  - Drug effective for unapproved indication [Unknown]
